FAERS Safety Report 7474922-1 (Version None)
Quarter: 2011Q2

REPORT INFORMATION
  Report Type: 
  Country: None (occurrence: None)
  Receive Date: 20110512
  Receipt Date: 20091114
  Transmission Date: 20111010
  Serious: Yes (Death, Hospitalization, Other)
  Sender: FDA-Public Use
  Company Number: US-BAYER-200939490NA

PATIENT
  Age: 13 Year
  Sex: Male
  Weight: 29 kg

DRUGS (13)
  1. TRASYLOL [Suspect]
     Indication: AORTIC VALVE REPLACEMENT
     Dosage: 1 ML, ONCE (INITIAL)
     Route: 042
     Dates: start: 20030625
  2. TRASYLOL [Suspect]
     Dosage: 3 ML/KG OVER 30 MINUTES
     Route: 042
     Dates: start: 20030625
  3. AMOXICILLIN [Concomitant]
     Dosage: 400 MG, CHEWABLE
     Route: 048
  4. DOPAMINE HCL [Concomitant]
     Dosage: UNK
     Dates: start: 20030624
  5. CEFAZOLIN [Concomitant]
     Dosage: 720 ML, UNK
     Dates: start: 20030624
  6. TELITHROMYCIN [Concomitant]
     Dosage: UNK UNK, QD
  7. HEPARIN [Concomitant]
     Dosage: UNK
     Dates: start: 20030624
  8. ISOFLURANE [Concomitant]
     Dosage: UNK
     Dates: start: 20030624
  9. SODIUM BICARBONATE [Concomitant]
     Dosage: UNK
     Dates: start: 20030624
  10. TRASYLOL [Suspect]
     Dosage: 900,000 UNITS FOR 30 MINUTES (LOADING)
     Route: 042
     Dates: start: 20030625
  11. PROTAMINE SULFATE [Concomitant]
     Dosage: UNK
     Dates: start: 20030624
  12. TRASYLOL [Suspect]
     Dosage: 300,000 UNITS/HR FOR 6HRS
     Route: 042
     Dates: start: 20030625
  13. NIPRIDE [Concomitant]
     Dosage: 0.5/1.2
     Dates: start: 20030625

REACTIONS (7)
  - UNEVALUABLE EVENT [None]
  - CARDIAC ARREST [None]
  - RENAL FAILURE ACUTE [None]
  - DEATH [None]
  - RENAL FAILURE [None]
  - INJURY [None]
  - PAIN [None]
